FAERS Safety Report 25951099 (Version 2)
Quarter: 2025Q4

REPORT INFORMATION
  Report Type: Report from Study
  Country: BR (occurrence: BR)
  Receive Date: 20251023
  Receipt Date: 20251024
  Transmission Date: 20260117
  Serious: Yes (Other)
  Sender: JOHNSON AND JOHNSON
  Company Number: BR-JNJFOC-20251024263

PATIENT

DRUGS (1)
  1. GOLIMUMAB [Suspect]
     Active Substance: GOLIMUMAB
     Indication: Colitis ulcerative
     Route: 065

REACTIONS (11)
  - Tuberculosis [Unknown]
  - Pneumonia [Unknown]
  - Upper respiratory tract infection [Unknown]
  - Urinary tract infection [Unknown]
  - Injection site rash [Unknown]
  - Folliculitis [Unknown]
  - Pruritus [Unknown]
  - Urticaria [Unknown]
  - Psoriasis [Unknown]
  - Headache [Unknown]
  - Arthralgia [Unknown]
